FAERS Safety Report 23700795 (Version 1)
Quarter: 2024Q2

REPORT INFORMATION
  Report Type: Spontaneous
  Country: US (occurrence: US)
  Receive Date: 20240403
  Receipt Date: 20240403
  Transmission Date: 20240716
  Serious: Yes (Other)
  Sender: FDA-Public Use
  Company Number: US-009507513-2404USA000018

PATIENT
  Age: 3 Decade
  Sex: Female

DRUGS (1)
  1. KEYTRUDA [Suspect]
     Active Substance: PEMBROLIZUMAB
     Indication: Rectal adenocarcinoma
     Dosage: UNK

REACTIONS (2)
  - Myopericarditis [Recovering/Resolving]
  - Immune-mediated myocarditis [Recovering/Resolving]
